FAERS Safety Report 12783196 (Version 1)
Quarter: 2016Q3

REPORT INFORMATION
  Report Type: Spontaneous
  Country: US (occurrence: US)
  Receive Date: 20160927
  Receipt Date: 20160927
  Transmission Date: 20161109
  Serious: Yes (Life-Threatening, Hospitalization, Other)
  Sender: FDA-Public Use
  Company Number: None

PATIENT
  Age: 6 Month
  Sex: Male

DRUGS (1)
  1. LOPERAMIDE [Suspect]
     Active Substance: LOPERAMIDE
     Indication: DIARRHOEA
     Route: 048

REACTIONS (12)
  - Vomiting [None]
  - Hot flush [None]
  - Diarrhoea [None]
  - Restlessness [None]
  - Ventricular tachycardia [None]
  - Nausea [None]
  - Withdrawal syndrome [None]
  - Hyperhidrosis [None]
  - Syncope [None]
  - Back pain [None]
  - Arrhythmia [None]
  - Chills [None]

NARRATIVE: CASE EVENT DATE: 20160919
